FAERS Safety Report 23762329 (Version 1)
Quarter: 2024Q2

REPORT INFORMATION
  Report Type: Other
  Country: IT (occurrence: IT)
  Receive Date: 20240419
  Receipt Date: 20240419
  Transmission Date: 20240716
  Serious: Yes (Hospitalization)
  Sender: FDA-Public Use
  Company Number: None

PATIENT

DRUGS (1)
  1. ONPATTRO [Suspect]
     Active Substance: PATISIRAN SODIUM
     Indication: Hereditary neuropathic amyloidosis
     Dosage: 21 MILLIGRAM, EVERY 3 WEEKS (Q3W)
     Route: 051
     Dates: start: 20210102, end: 20210102

REACTIONS (3)
  - Pyrexia [Recovering/Resolving]
  - Administration site extravasation [Recovering/Resolving]
  - Cellulitis [Recovering/Resolving]

NARRATIVE: CASE EVENT DATE: 20240322
